FAERS Safety Report 4520256-4 (Version None)
Quarter: 2004Q4

REPORT INFORMATION
  Report Type: 
  Country: None (occurrence: None)
  Receive Date: 20041025
  Receipt Date: 20040831
  Transmission Date: 20050328
  Serious: Yes (Hospitalization)
  Sender: FDA-Public Use
  Company Number: USA040977101

PATIENT
  Sex: Male

DRUGS (2)
  1. ZYPREXA [Suspect]
     Dosage: 10 MG
     Dates: start: 20040101
  2. SYMBYAX [Suspect]
     Dates: start: 20040101

REACTIONS (1)
  - DIABETIC KETOACIDOSIS [None]
